FAERS Safety Report 8964568 (Version 1)
Quarter: 2012Q4

REPORT INFORMATION
  Report Type: Report from Study
  Country: US (occurrence: US)
  Receive Date: 20121213
  Receipt Date: 20121213
  Transmission Date: 20130627
  Serious: Yes (Other)
  Sender: FDA-Public Use
  Company Number: US-US-EMD SERONO, INC.-7180984

PATIENT
  Sex: Male

DRUGS (4)
  1. REBIF [Suspect]
     Indication: PRODUCT USED FOR UNKNOWN INDICATION
     Route: 058
     Dates: start: 20111205
  2. ALEVE [Concomitant]
     Indication: PREMEDICATION
  3. TYLENOL [Concomitant]
     Indication: PREMEDICATION
  4. IBUPROFEN [Concomitant]
     Indication: PREMEDICATION

REACTIONS (4)
  - Staphylococcal infection [Recovered/Resolved]
  - Lactose intolerance [Recovering/Resolving]
  - Hypotension [Recovering/Resolving]
  - Nausea [Not Recovered/Not Resolved]
